FAERS Safety Report 22153133 (Version 1)
Quarter: 2023Q1

REPORT INFORMATION
  Report Type: Spontaneous
  Country: GB (occurrence: GB)
  Receive Date: 20230329
  Receipt Date: 20230329
  Transmission Date: 20230418
  Serious: Yes (Other)
  Sender: FDA-Public Use
  Company Number: GB-CELLTRION HEALTHCARE HUNGARY KFT-2023GB005188

PATIENT
  Sex: Female

DRUGS (10)
  1. METHOTREXATE [Suspect]
     Active Substance: METHOTREXATE
     Indication: Psoriatic arthropathy
     Dosage: UNK DOSE AND FREQUENCY?ROUTE: SUBCUTANEOUS
     Route: 050
     Dates: start: 201809
  2. METHOTREXATE [Suspect]
     Active Substance: METHOTREXATE
     Dosage: UNK DOSE AND FREQUENCY?ROUTE: SUBCUTANEOUS
     Route: 050
     Dates: end: 202008
  3. ADALIMUMAB [Suspect]
     Active Substance: ADALIMUMAB
     Indication: Psoriatic arthropathy
     Dosage: UNK, BIOSIMILAR?DOSE AND FREQUENCY UNKNOWN?ROUTE: SUBCUTANEOUS
     Route: 050
  4. PREDNISOLONE [Suspect]
     Active Substance: PREDNISOLONE
     Indication: Psoriatic arthropathy
     Dosage: SHORT COURSE; ;
     Route: 050
     Dates: start: 201903
  5. ETANERCEPT [Suspect]
     Active Substance: ETANERCEPT
     Indication: Psoriatic arthropathy
     Dosage: UNK; ;
     Route: 050
  6. LEFLUNOMIDE [Suspect]
     Active Substance: LEFLUNOMIDE
     Indication: Psoriatic arthropathy
     Dosage: UNK DOSE AND FREQUENCY
     Route: 050
  7. LEFLUNOMIDE [Suspect]
     Active Substance: LEFLUNOMIDE
     Dosage: UNK DOSE AND FREQUENCY
     Route: 050
  8. SECUKINUMAB [Suspect]
     Active Substance: SECUKINUMAB
     Indication: Psoriatic arthropathy
     Dosage: UNK; ;
     Route: 050
     Dates: start: 201903
  9. SULFASALAZINE [Suspect]
     Active Substance: SULFASALAZINE
     Indication: Psoriatic arthropathy
     Dosage: UNK; ;
     Route: 050
     Dates: start: 201809
  10. TOFACITINIB [Suspect]
     Active Substance: TOFACITINIB
     Indication: Psoriatic arthropathy
     Dosage: UNK; ;
     Route: 050
     Dates: start: 202008

REACTIONS (1)
  - Multiple-drug resistance [Unknown]
